FAERS Safety Report 11358843 (Version 1)
Quarter: 2015Q3

REPORT INFORMATION
  Report Type: Spontaneous
  Country: US (occurrence: None)
  Receive Date: 20150807
  Receipt Date: 20150807
  Transmission Date: 20151125
  Serious: No
  Sender: FDA-Public Use
  Company Number: None

PATIENT
  Age: 43 Year
  Sex: Female

DRUGS (1)
  1. MYCOPHENOLATE [Suspect]
     Active Substance: MYCOPHENOLIC ACID
     Route: 048

REACTIONS (4)
  - Coeliac disease [None]
  - Product substitution issue [None]
  - Gastric disorder [None]
  - Product quality issue [None]

NARRATIVE: CASE EVENT DATE: 20150803
